FAERS Safety Report 19521474 (Version 2)
Quarter: 2021Q3

REPORT INFORMATION
  Report Type: Spontaneous
  Country: US (occurrence: US)
  Receive Date: 20210712
  Receipt Date: 20210730
  Transmission Date: 20211014
  Serious: No
  Sender: FDA-Public Use
  Company Number: US-SUNOVION-2021SUN002624

PATIENT
  Age: 60 Year
  Sex: Male
  Weight: 77.11 kg

DRUGS (6)
  1. LATUDA [Suspect]
     Active Substance: LURASIDONE HYDROCHLORIDE
     Indication: BIPOLAR DISORDER
     Dosage: 40 MG
     Route: 048
     Dates: start: 20210701
  2. VRAYLAR [Concomitant]
     Active Substance: CARIPRAZINE
  3. LATUDA [Suspect]
     Active Substance: LURASIDONE HYDROCHLORIDE
     Dosage: 40 MG
     Route: 048
     Dates: start: 20210524, end: 20210614
  4. LATUDA [Suspect]
     Active Substance: LURASIDONE HYDROCHLORIDE
     Dosage: 20 MG
     Route: 048
     Dates: start: 20210419, end: 20210524
  5. DULOXETINE. [Concomitant]
     Active Substance: DULOXETINE
     Dosage: 120 MG
  6. LATUDA [Suspect]
     Active Substance: LURASIDONE HYDROCHLORIDE
     Dosage: 60 MG, QD
     Route: 048
     Dates: start: 20210614, end: 20210629

REACTIONS (2)
  - Irritability [Unknown]
  - Depression [Recovering/Resolving]
